FAERS Safety Report 11774424 (Version 1)
Quarter: 2015Q4

REPORT INFORMATION
  Report Type: Report from Study
  Country: IR (occurrence: IR)
  Receive Date: 20151124
  Receipt Date: 20151124
  Transmission Date: 20160304
  Serious: Yes (Other)
  Sender: FDA-Public Use
  Company Number: IR-BAYER-2015-469945

PATIENT
  Age: 29 Year
  Sex: Female

DRUGS (1)
  1. BETAFERON [Suspect]
     Active Substance: INTERFERON BETA-1B
     Indication: MULTIPLE SCLEROSIS
     Dosage: 250 ?G, QOD
     Route: 058
     Dates: start: 201408

REACTIONS (3)
  - Epistaxis [None]
  - Injection site swelling [Recovered/Resolved]
  - White blood cell count decreased [None]

NARRATIVE: CASE EVENT DATE: 20151023
